FAERS Safety Report 17413132 (Version 1)
Quarter: 2020Q1

REPORT INFORMATION
  Report Type: Spontaneous
  Country: HU (occurrence: HU)
  Receive Date: 20200213
  Receipt Date: 20200213
  Transmission Date: 20200409
  Serious: Yes (Other)
  Sender: FDA-Public Use
  Company Number: HU-ROCHE-2545160

PATIENT
  Age: 49 Year

DRUGS (4)
  1. METHYLPREDNISOLONE SODIUM SUCCINATE. [Suspect]
     Active Substance: METHYLPREDNISOLONE SODIUM SUCCINATE
     Indication: NEUROMYELITIS OPTICA SPECTRUM DISORDER
     Dosage: 1 G, FOR 5 DAYS
     Route: 042
     Dates: start: 201707
  2. RITUXIMAB. [Suspect]
     Active Substance: RITUXIMAB
     Dosage: 1000 MG, ON 1 OCCCASION
     Route: 065
     Dates: start: 2018
  3. AZATHIOPRINE. [Suspect]
     Active Substance: AZATHIOPRINE
     Indication: NEUROMYELITIS OPTICA SPECTRUM DISORDER
     Route: 065
     Dates: start: 201707
  4. RITUXIMAB. [Suspect]
     Active Substance: RITUXIMAB
     Indication: NEUROMYELITIS OPTICA SPECTRUM DISORDER
     Dosage: 375 MG/M2, WEEKLY (ON 4 OCCASIONS)
     Route: 065
     Dates: start: 2018

REACTIONS (12)
  - Oral candidiasis [Recovering/Resolving]
  - Optic neuritis [Recovering/Resolving]
  - Osteoporotic fracture [Recovering/Resolving]
  - Varicella [Recovering/Resolving]
  - Paraparesis [Recovered/Resolved]
  - Cataract [Recovering/Resolving]
  - Nausea [Recovering/Resolving]
  - Anaemia [Recovering/Resolving]
  - Pyrexia [Recovering/Resolving]
  - Neutropenia [Recovering/Resolving]
  - Vomiting [Recovering/Resolving]
  - Blood culture positive [Recovering/Resolving]

NARRATIVE: CASE EVENT DATE: 201710
